FAERS Safety Report 11225325 (Version 1)
Quarter: 2015Q2

REPORT INFORMATION
  Report Type: Spontaneous
  Country: US (occurrence: US)
  Receive Date: 20150629
  Receipt Date: 20150629
  Transmission Date: 20150821
  Serious: No
  Sender: FDA-Public Use
  Company Number: US-BAYER-2015-360605

PATIENT
  Age: 76 Year
  Sex: Female
  Weight: 72.56 kg

DRUGS (3)
  1. CLARITIN-D 24 HOUR [Suspect]
     Active Substance: LORATADINE\PSEUDOEPHEDRINE SULFATE
     Indication: SEASONAL ALLERGY
     Dosage: UNK
     Route: 048
  2. CLARITIN-D 24 HOUR [Suspect]
     Active Substance: LORATADINE\PSEUDOEPHEDRINE SULFATE
     Indication: SEASONAL ALLERGY
     Dosage: 1 DF, QD
     Route: 048
     Dates: start: 20150616, end: 20150618
  3. SYNTHROID [Concomitant]
     Active Substance: LEVOTHYROXINE SODIUM

REACTIONS (6)
  - Thirst [Not Recovered/Not Resolved]
  - Insomnia [Unknown]
  - Insomnia [Unknown]
  - Feeling abnormal [Not Recovered/Not Resolved]
  - Nasal dryness [Not Recovered/Not Resolved]
  - Headache [Recovered/Resolved]

NARRATIVE: CASE EVENT DATE: 20150616
